FAERS Safety Report 5129688-7 (Version None)
Quarter: 2006Q4

REPORT INFORMATION
  Report Type: 
  Country: None (occurrence: None)
  Receive Date: 20061018
  Receipt Date: 20061002
  Transmission Date: 20070319
  Serious: Yes (Hospitalization)
  Sender: FDA-Public Use
  Company Number: 463823

PATIENT
  Age: 82 Year
  Sex: Male

DRUGS (9)
  1. CARVEDILOL [Suspect]
     Route: 048
  2. PANALDINE [Suspect]
     Indication: THROMBOSIS PROPHYLAXIS
     Dosage: 200MG PER DAY
     Route: 048
     Dates: start: 20060718, end: 20060822
  3. ISOSORBIDE MONONITRATE [Suspect]
     Route: 048
  4. ASPIRIN [Suspect]
     Dosage: 100MG PER DAY
     Route: 048
  5. OLMESARTAN MEDOXOMIL [Suspect]
     Route: 048
  6. HARNAL [Suspect]
     Route: 048
  7. SYMMETREL [Suspect]
     Route: 048
  8. PLETAL [Suspect]
     Route: 048
  9. PROSTAL [Suspect]
     Route: 048

REACTIONS (2)
  - CHOLESTASIS [None]
  - LIVER DISORDER [None]
